FAERS Safety Report 5564371-5 (Version None)
Quarter: 2007Q4

REPORT INFORMATION
  Report Type: 
  Country: None (occurrence: None)
  Receive Date: 20071218
  Receipt Date: 20071211
  Transmission Date: 20080405
  Serious: Yes (Life-Threatening, Hospitalization)
  Sender: FDA-Public Use
  Company Number: NL-BRISTOL-MYERS SQUIBB COMPANY-14017388

PATIENT
  Age: 82 Year
  Sex: Female

DRUGS (5)
  1. GLUCOPHAGE [Suspect]
     Indication: DIABETES MELLITUS
     Dates: start: 20050308, end: 20071117
  2. LISINOPRIL [Concomitant]
     Dosage: DOSE FORM: TABLET
     Route: 048
     Dates: start: 20070801
  3. CRESTOR [Concomitant]
     Dosage: DOSE FORM: TABLET
  4. NIFEDIPINE [Concomitant]
     Route: 048
  5. AMILORID COMP PHARMAVIT TABS 5MG/50MG [Concomitant]
     Dosage: 1 DOSAGE FORM=5MG/50MG
     Route: 048
     Dates: end: 20071124

REACTIONS (2)
  - LACTIC ACIDOSIS [None]
  - RENAL IMPAIRMENT [None]
